FAERS Safety Report 21776974 (Version 1)
Quarter: 2022Q4

REPORT INFORMATION
  Report Type: Report from Study
  Country: MX (occurrence: MX)
  Receive Date: 20221226
  Receipt Date: 20221226
  Transmission Date: 20230113
  Serious: Yes (Other)
  Sender: FDA-Public Use
  Company Number: MX-002147023-NVSC2022MX251742

PATIENT
  Age: 63 Year
  Sex: Female
  Weight: 60 kg

DRUGS (7)
  1. MAYZENT [Suspect]
     Active Substance: SIPONIMOD
     Indication: Multiple sclerosis
     Dosage: 1 DOSAGE FORM (0.25 MG)
     Route: 048
     Dates: start: 20221030
  2. MAYZENT [Suspect]
     Active Substance: SIPONIMOD
     Dosage: 1 DOSAGE FORM (0.25 MG)
     Route: 048
     Dates: start: 20221031
  3. MAYZENT [Suspect]
     Active Substance: SIPONIMOD
     Dosage: 2 DOSAGE FORM (0.25 MG)
     Route: 048
     Dates: start: 20221101
  4. MAYZENT [Suspect]
     Active Substance: SIPONIMOD
     Dosage: 2 DOSAGE FORM (0.25 MG)
     Route: 048
     Dates: start: 20221102
  5. MAYZENT [Suspect]
     Active Substance: SIPONIMOD
     Dosage: 3 DOSAGE FORM (0.25 MG)
     Route: 048
     Dates: start: 20221103
  6. MAYZENT [Suspect]
     Active Substance: SIPONIMOD
     Dosage: 3 DOSAGE FORM (0.25 MG)
     Route: 048
     Dates: start: 20221104, end: 20221104
  7. AMLODIPINE [Concomitant]
     Active Substance: AMLODIPINE BESYLATE
     Indication: Hypertension
     Dosage: 1 DOSAGE FORM, QD (2.5 MG, STARTED 2 YEARS AGO, DID NOT KNOW EXACT DATE)
     Route: 048

REACTIONS (5)
  - Macular oedema [Recovered/Resolved]
  - Vision blurred [Recovered/Resolved]
  - Eye allergy [Unknown]
  - Ocular discomfort [Unknown]
  - Off label use [Unknown]

NARRATIVE: CASE EVENT DATE: 20221102
